FAERS Safety Report 9720048 (Version 3)
Quarter: 2014Q1

REPORT INFORMATION
  Report Type: Report from Study
  Country: ZA (occurrence: ZA)
  Receive Date: 20131128
  Receipt Date: 20140213
  Transmission Date: 20141002
  Serious: Yes (Hospitalization)
  Sender: FDA-Public Use
  Company Number: ZA-BRISTOL-MYERS SQUIBB COMPANY-19862366

PATIENT
  Age: 40 Year
  Sex: Female
  Weight: 43.5 kg

DRUGS (3)
  1. STOCRIN CAPS [Suspect]
     Indication: HIV INFECTION
     Dosage: LAST DOSE ON 15-NOV-2013
     Route: 048
     Dates: start: 20130919
  2. ISONIAZID+PYRAZINAMIDE+RIFAMPICIN [Suspect]
     Indication: HIV INFECTION
     Dosage: 1 DF= 3 TABLETS
     Route: 048
     Dates: start: 20130919
  3. ETHAMBUTOL [Suspect]
     Indication: HIV INFECTION
     Dosage: 3 DF= 3 TABLETS
     Route: 048
     Dates: start: 20130919

REACTIONS (1)
  - Gastroenteritis [Recovered/Resolved]
